FAERS Safety Report 8720172 (Version 4)
Quarter: 2012Q4

REPORT INFORMATION
  Report Type: 
  Country: IT (occurrence: IT)
  Receive Date: 20120813
  Receipt Date: 20120906
  Transmission Date: 20130627
  Serious: Yes (Other)
  Sender: FDA-Public Use
  Company Number: IT-PFIZER INC-2012194458

PATIENT
  Age: 67 Year
  Sex: Female

DRUGS (2)
  1. CORDARONE [Suspect]
     Indication: TACHYCARDIA PAROXYSMAL
     Dosage: 400 mg, daily
     Route: 065
     Dates: start: 1976, end: 198305
  2. CORDARONE [Suspect]
     Indication: CHEST PAIN

REACTIONS (3)
  - Retinopathy [Not Recovered/Not Resolved]
  - Pigmentation disorder [Unknown]
  - Keratopathy [Unknown]
